FAERS Safety Report 7909013-6 (Version None)
Quarter: 2011Q4

REPORT INFORMATION
  Report Type: 
  Country: None (occurrence: None)
  Receive Date: 20111111
  Receipt Date: 20111110
  Transmission Date: 20120403
  Serious: Yes (Hospitalization)
  Sender: FDA-Public Use
  Company Number: IT-BAYER-2011-109068

PATIENT
  Age: 90 Year
  Sex: Female

DRUGS (5)
  1. ASPIRIN [Suspect]
     Dosage: 100 MG, QD
     Route: 048
     Dates: start: 20100918, end: 20110917
  2. LASIX [Concomitant]
     Dosage: UNK
  3. NITROGLYCERIN [Concomitant]
     Dosage: DAILY DOSE 10 MG
     Route: 062
  4. ESOPRAL [Concomitant]
  5. SEROQUEL [Concomitant]

REACTIONS (1)
  - CEREBRAL HAEMATOMA [None]
